FAERS Safety Report 6826722-0 (Version None)
Quarter: 2010Q3

REPORT INFORMATION
  Report Type: 
  Country: None (occurrence: None)
  Receive Date: 20100709
  Receipt Date: 20100701
  Transmission Date: 20110219
  Serious: Yes (Other)
  Sender: FDA-Public Use
  Company Number: GXKR2010GB07320

PATIENT
  Age: 89 Year
  Sex: Male

DRUGS (5)
  1. ACETAMINOPHEN [Suspect]
     Indication: BACK PAIN
     Dosage: 1 G, QID
     Route: 065
  2. CYPROTERONE ACETATE [Concomitant]
  3. GOSERELIN [Concomitant]
  4. SALINE [Concomitant]
  5. DEXTROSE [Concomitant]

REACTIONS (1)
  - HYPERNATRAEMIA [None]
